FAERS Safety Report 14995345 (Version 2)
Quarter: 2018Q2

REPORT INFORMATION
  Report Type: Report from Study
  Country: BR (occurrence: BR)
  Receive Date: 20180611
  Receipt Date: 20180628
  Transmission Date: 20180711
  Serious: Yes (Other)
  Sender: FDA-Public Use
  Company Number: BR-ROCHE-2132110

PATIENT

DRUGS (4)
  1. RIBAVIRIN. [Suspect]
     Active Substance: RIBAVIRIN
     Indication: HEPATITIS C
     Dosage: 1,000 OR 1,250MG DAILY, FOR BODY WEIGHT LESS THAN OR GREATER THAN 75 KG RESPECTIVELY.
     Route: 065
  2. PEG-INTERFERON ALFA 2A [Suspect]
     Active Substance: PEGINTERFERON ALFA-2A
     Indication: HEPATITIS C
     Route: 058
  3. BOCEPREVIR [Suspect]
     Active Substance: BOCEPREVIR
     Indication: HEPATITIS C
     Dosage: (4 TABLETS OF 200MG) EVERY 8 HOURS.
     Route: 065
  4. TELAPREVIR [Suspect]
     Active Substance: TELAPREVIR
     Indication: HEPATITIS C
     Dosage: (2 TABLETS OF 375MG) EVERY 8 HOURS.
     Route: 065

REACTIONS (32)
  - Thrombocytopenia [Unknown]
  - Pruritus [Unknown]
  - Constipation [Unknown]
  - Abdominal pain upper [Unknown]
  - Dry mouth [Unknown]
  - Neutropenia [Unknown]
  - Anaemia [Unknown]
  - Influenza like illness [Unknown]
  - Decreased appetite [Unknown]
  - Somnolence [Unknown]
  - Rash [Unknown]
  - Asthenia [Unknown]
  - Dysgeusia [Unknown]
  - Nausea [Unknown]
  - Visual acuity reduced [Unknown]
  - Alopecia [Unknown]
  - Dyspnoea [Unknown]
  - Vision blurred [Unknown]
  - Epistaxis [Unknown]
  - Insomnia [Unknown]
  - Mouth ulceration [Unknown]
  - Renal impairment [Unknown]
  - Cough [Unknown]
  - Dizziness [Unknown]
  - Oedema peripheral [Unknown]
  - Hepatic cirrhosis [Unknown]
  - Anorectal disorder [Unknown]
  - Vomiting [Unknown]
  - Diarrhoea [Unknown]
  - Mental disorder [Unknown]
  - Tachycardia [Unknown]
  - Paraesthesia [Unknown]
